FAERS Safety Report 17969562 (Version 1)
Quarter: 2020Q3

REPORT INFORMATION
  Report Type: Other
  Country: US (occurrence: US)
  Receive Date: 20200701
  Receipt Date: 20200701
  Transmission Date: 20201103
  Serious: Yes (Hospitalization, Other)
  Sender: FDA-Public Use
  Company Number: US-WES PHARMA INC-2086938

PATIENT
  Age: 55 Year
  Sex: Male

DRUGS (1)
  1. OXYCODONE HYDROCHLORIDE. [Suspect]
     Active Substance: OXYCODONE HYDROCHLORIDE
     Indication: BACK PAIN
     Route: 048

REACTIONS (9)
  - Shock [Recovered/Resolved]
  - Accidental overdose [Unknown]
  - Acute respiratory failure [Recovered/Resolved]
  - Spinal cord ischaemia [Unknown]
  - Myelitis transverse [Unknown]
  - Hypotension [Recovered/Resolved]
  - Unresponsive to stimuli [Recovered/Resolved]
  - Myelopathy [Unknown]
  - Multiple organ dysfunction syndrome [Recovered/Resolved]
